FAERS Safety Report 15860862 (Version 1)
Quarter: 2019Q1

REPORT INFORMATION
  Report Type: Spontaneous
  Country: US (occurrence: US)
  Receive Date: 20190124
  Receipt Date: 20190124
  Transmission Date: 20190417
  Serious: No
  Sender: FDA-Public Use
  Company Number: US-NATCO PHARMA LIMITED-2061678

PATIENT
  Age: 76 Year
  Sex: Female

DRUGS (5)
  1. CENTRUM VITAMINS [Concomitant]
  2. LETROZOLE. [Suspect]
     Active Substance: LETROZOLE
     Indication: BREAST CANCER
  3. METOPROLOL. [Concomitant]
     Active Substance: METOPROLOL
  4. PROBIOTICS [Concomitant]
     Active Substance: PROBIOTICS NOS
  5. SYNTHROID [Concomitant]
     Active Substance: LEVOTHYROXINE SODIUM

REACTIONS (4)
  - Product substitution issue [Recovered/Resolved]
  - Breast tenderness [Recovered/Resolved]
  - Discomfort [Recovered/Resolved]
  - Pain [Recovered/Resolved]
